FAERS Safety Report 5289603-2 (Version None)
Quarter: 2007Q2

REPORT INFORMATION
  Report Type: 
  Country: None (occurrence: None)
  Receive Date: 20070406
  Receipt Date: 20070328
  Transmission Date: 20071010
  Serious: Yes (Hospitalization, Disabling)
  Sender: FDA-Public Use
  Company Number: 2007UW05410

PATIENT
  Age: 45 Year
  Sex: Male

DRUGS (2)
  1. CRESTOR [Suspect]
     Route: 048
     Dates: start: 20060314, end: 20060809
  2. DIOVAN [Concomitant]
     Indication: HYPERTENSION
     Dates: start: 20030101

REACTIONS (6)
  - ABDOMINAL PAIN [None]
  - DERMATOMYOSITIS [None]
  - FATIGUE [None]
  - MUSCULAR WEAKNESS [None]
  - PHARYNGITIS [None]
  - RHABDOMYOLYSIS [None]
